FAERS Safety Report 7001480-8 (Version None)
Quarter: 2010Q3

REPORT INFORMATION
  Report Type: 
  Country: None (occurrence: None)
  Receive Date: 20100920
  Receipt Date: 20100909
  Transmission Date: 20110219
  Serious: Yes (Hospitalization)
  Sender: FDA-Public Use
  Company Number: FR-ROCHE-726736

PATIENT
  Sex: Male
  Weight: 65 kg

DRUGS (3)
  1. BEVACIZUMAB [Suspect]
     Indication: NON-SMALL CELL LUNG CANCER
     Dosage: LAST DOSE PROR TO SAE: 02 SEPTEMBER 2010
     Route: 042
     Dates: start: 20100531
  2. PACLITAXEL [Suspect]
     Indication: NON-SMALL CELL LUNG CANCER
     Dosage: LAST DOSE PRIOR TO SAE: 02 SEP 2010
     Route: 042
     Dates: start: 20100531
  3. CARBOPLATIN [Suspect]
     Indication: NON-SMALL CELL LUNG CANCER
     Dosage: DOSE: 6 AUC.  LAST DOSE PRIOR TO SAE: 02 SEP 2010.
     Route: 042
     Dates: start: 20100531

REACTIONS (1)
  - FEBRILE BONE MARROW APLASIA [None]
